FAERS Safety Report 16978831 (Version 1)
Quarter: 2019Q4

REPORT INFORMATION
  Report Type: Spontaneous
  Country: US (occurrence: US)
  Receive Date: 20191031
  Receipt Date: 20191031
  Transmission Date: 20200122
  Serious: Yes (Hospitalization, Other)
  Sender: FDA-Public Use
  Company Number: US-AMNEAL PHARMACEUTICALS-2019-AMRX-02378

PATIENT
  Age: 46 Year
  Sex: Female
  Weight: 73 kg

DRUGS (8)
  1. ACTIVELLA [Suspect]
     Active Substance: ESTRADIOL\NORETHINDRONE ACETATE
     Dosage: 2 DOSAGE FORM
     Route: 048
     Dates: start: 20170608
  2. ELAGOLIX [Suspect]
     Active Substance: ELAGOLIX
     Dosage: UNK
     Route: 048
     Dates: start: 20170608
  3. CHLORTHALIDONE. [Concomitant]
     Active Substance: CHLORTHALIDONE
     Indication: HYPERTENSION
     Dosage: UNK
     Route: 048
  4. NAPROXEN. [Concomitant]
     Active Substance: NAPROXEN
     Indication: BACK PAIN
     Dosage: UNK
     Route: 048
  5. ELAGOLIX [Suspect]
     Active Substance: ELAGOLIX
     Indication: UTERINE LEIOMYOMA
     Dosage: 2 DOSAGE FORM, QD
     Route: 048
     Dates: start: 20170502, end: 20170514
  6. KETOROLAC TROMETHAMINE. [Concomitant]
     Active Substance: KETOROLAC TROMETHAMINE
     Indication: SCIATICA
     Dosage: UNK, 30MG/ML (1 IN 1DOSE)
     Route: 065
     Dates: start: 20170516, end: 20170516
  7. KETOROLAC TROMETHAMINE. [Concomitant]
     Active Substance: KETOROLAC TROMETHAMINE
     Dosage: 10 MILLIGRAM AS REQUIRED
     Route: 048
     Dates: start: 20170516, end: 20170516
  8. ACTIVELLA [Suspect]
     Active Substance: ESTRADIOL\NORETHINDRONE ACETATE
     Indication: UTERINE LEIOMYOMA
     Dosage: 2 DOSAGE FORM, QD
     Route: 048
     Dates: start: 20170502, end: 20170514

REACTIONS (1)
  - Intervertebral disc protrusion [Recovered/Resolved]

NARRATIVE: CASE EVENT DATE: 20170514
